FAERS Safety Report 10993581 (Version 1)
Quarter: 2015Q2

REPORT INFORMATION
  Report Type: Spontaneous
  Country: US (occurrence: None)
  Receive Date: 20150406
  Receipt Date: 20150406
  Transmission Date: 20150821
  Serious: Yes (Hospitalization)
  Sender: FDA-Public Use
  Company Number: None

PATIENT
  Age: 6 Year
  Sex: Male
  Weight: 21.32 kg

DRUGS (1)
  1. METHYLPHENID [Suspect]
     Active Substance: METHYLPHENIDATE
     Indication: ATTENTION DEFICIT/HYPERACTIVITY DISORDER
     Dosage: 1PILL
     Route: 048
     Dates: start: 20150112, end: 20150404

REACTIONS (4)
  - Tongue biting [None]
  - Mydriasis [None]
  - Eye movement disorder [None]
  - Dyskinesia [None]

NARRATIVE: CASE EVENT DATE: 20150403
